FAERS Safety Report 19763381 (Version 7)
Quarter: 2025Q2

REPORT INFORMATION
  Report Type: Report from Study
  Country: CA (occurrence: CA)
  Receive Date: 20210830
  Receipt Date: 20250618
  Transmission Date: 20250716
  Serious: Yes (Other)
  Sender: TAKEDA
  Company Number: CA-TAKEDA-2019TUS041492

PATIENT
  Age: 50 Year
  Sex: Female

DRUGS (14)
  1. VEDOLIZUMAB [Suspect]
     Active Substance: VEDOLIZUMAB
     Indication: Crohn^s disease
  2. VEDOLIZUMAB [Suspect]
     Active Substance: VEDOLIZUMAB
  3. VEDOLIZUMAB [Suspect]
     Active Substance: VEDOLIZUMAB
  4. VEDOLIZUMAB [Suspect]
     Active Substance: VEDOLIZUMAB
  5. VEDOLIZUMAB [Suspect]
     Active Substance: VEDOLIZUMAB
     Dosage: 300 MILLIGRAM, Q6WEEKS
     Dates: start: 20250331
  6. RITUXAN [Concomitant]
     Active Substance: RITUXIMAB
  7. VITAMIN D [Concomitant]
     Active Substance: VITAMIN D NOS
  8. BUDESONIDE [Concomitant]
     Active Substance: BUDESONIDE
  9. DALFAMPRIDINE [Concomitant]
     Active Substance: DALFAMPRIDINE
  10. OCREVUS [Concomitant]
     Active Substance: OCRELIZUMAB
  11. PREDNISONE [Concomitant]
     Active Substance: PREDNISONE
  12. BACLOFEN [Concomitant]
     Active Substance: BACLOFEN
  13. MAYZENT [Concomitant]
     Active Substance: SIPONIMOD
  14. IMURAN [Concomitant]
     Active Substance: AZATHIOPRINE

REACTIONS (15)
  - Crohn^s disease [Unknown]
  - Pneumonia [Unknown]
  - Multiple sclerosis relapse [Unknown]
  - Female genital tract fistula [Unknown]
  - Abdominal mass [Unknown]
  - Neutrophil count increased [Unknown]
  - Aphthous ulcer [Unknown]
  - Weight decreased [Unknown]
  - Platelet count decreased [Unknown]
  - Diarrhoea [Unknown]
  - Gait disturbance [Unknown]
  - Off label use [Unknown]
  - Nasopharyngitis [Unknown]
  - Arthralgia [Unknown]
  - Influenza [Unknown]

NARRATIVE: CASE EVENT DATE: 20250331
